FAERS Safety Report 5924359-9 (Version None)
Quarter: 2008Q4

REPORT INFORMATION
  Report Type: 
  Country: None (occurrence: None)
  Receive Date: 20081020
  Receipt Date: 20081013
  Transmission Date: 20090506
  Serious: Yes (Hospitalization)
  Sender: FDA-Public Use
  Company Number: US-ELI_LILLY_AND_COMPANY-US200810002950

PATIENT
  Sex: Female
  Weight: 104 kg

DRUGS (17)
  1. BYETTA [Suspect]
     Indication: TYPE 2 DIABETES MELLITUS
     Dosage: 5 UG, 2/D
     Route: 058
     Dates: start: 20070101, end: 20080101
  2. BYETTA [Suspect]
     Dosage: 10 UG, 2/D
     Route: 058
     Dates: start: 20080101
  3. NOVOLOG [Concomitant]
     Indication: TYPE 2 DIABETES MELLITUS
  4. WARFARIN SODIUM [Concomitant]
     Dosage: 5 MG, DAILY (1/D)
  5. TRAMADOL HCL [Concomitant]
     Dosage: UNK, AS NEEDED
  6. LEVOTHYROXINE SODIUM [Concomitant]
     Dosage: 50 UG, DAILY (1/D)
     Route: 048
  7. DICYCLOMINE [Concomitant]
     Dosage: UNK, AS NEEDED
  8. FUROSEMIDE [Concomitant]
     Dosage: 80 MG, DAILY (1/D)
     Route: 048
  9. RAMIPRIL [Concomitant]
     Dosage: UNK, DAILY (1/D)
     Route: 048
  10. VITAMIN D [Concomitant]
     Dosage: UNK, 3/W
     Route: 048
  11. METOPROLOL TARTRATE [Concomitant]
     Dosage: UNK, 2/D
     Route: 048
  12. METFORMIN HYDROCHLORIDE [Concomitant]
     Indication: TYPE 2 DIABETES MELLITUS
     Dosage: UNK, DAILY (1/D)
  13. SIMVASTATIN [Concomitant]
     Dosage: UNK, DAILY (1/D)
     Route: 048
  14. ADVAIR DISKUS 100/50 [Concomitant]
     Dosage: UNK, AS NEEDED
  15. ALBUTEROL [Concomitant]
     Dosage: UNK, AS NEEDED
  16. CEFACLOR [Concomitant]
     Dosage: UNK, 2/D
     Route: 048
  17. RANITIDINE [Concomitant]
     Dosage: UNK, DAILY (1/D)

REACTIONS (13)
  - BONE PAIN [None]
  - CEREBROVASCULAR ACCIDENT [None]
  - DIZZINESS [None]
  - FALL [None]
  - FLUID RETENTION [None]
  - INTERVERTEBRAL DISC DEGENERATION [None]
  - LOCALISED INFECTION [None]
  - MEMORY IMPAIRMENT [None]
  - MYOCARDIAL INFARCTION [None]
  - OEDEMA PERIPHERAL [None]
  - PAIN [None]
  - POOR QUALITY SLEEP [None]
  - THROMBOSIS [None]
